FAERS Safety Report 7321054-9 (Version None)
Quarter: 2011Q1

REPORT INFORMATION
  Report Type: 
  Country: None (occurrence: None)
  Receive Date: 20110228
  Receipt Date: 20110218
  Transmission Date: 20110831
  Serious: Yes (Other)
  Sender: FDA-Public Use
  Company Number: US-JNJFOC-20110205861

PATIENT
  Sex: Female

DRUGS (2)
  1. BENADRYL [Suspect]
     Route: 048
  2. BENADRYL [Suspect]
     Indication: PRODUCT USED FOR UNKNOWN INDICATION
     Dosage: TWO TABLETS ONE TIME
     Route: 048

REACTIONS (3)
  - DYSARTHRIA [None]
  - EXPIRED DRUG ADMINISTERED [None]
  - ASTHENIA [None]
